FAERS Safety Report 10958679 (Version 1)
Quarter: 2015Q1

REPORT INFORMATION
  Report Type: Spontaneous
  Country: US (occurrence: US)
  Receive Date: 20150326
  Receipt Date: 20150326
  Transmission Date: 20150721
  Serious: Yes (Hospitalization)
  Sender: FDA-Public Use
  Company Number: US-ALLERGAN-1505207US

PATIENT
  Age: 43 Year
  Sex: Female

DRUGS (4)
  1. REGLAN [Concomitant]
     Active Substance: METOCLOPRAMIDE HYDROCHLORIDE
  2. BOTOX COSMETIC [Suspect]
     Active Substance: ONABOTULINUMTOXINA
     Indication: SKIN WRINKLING
     Dosage: UNK, SINGLE
     Route: 030
     Dates: start: 20140616, end: 20140616
  3. BOTOX COSMETIC [Suspect]
     Active Substance: ONABOTULINUMTOXINA
     Indication: SKIN WRINKLING
  4. SEROQUEL [Concomitant]
     Active Substance: QUETIAPINE FUMARATE

REACTIONS (6)
  - Facial spasm [Not Recovered/Not Resolved]
  - Torticollis [Unknown]
  - Dehydration [Unknown]
  - Muscle spasms [Not Recovered/Not Resolved]
  - Bladder disorder [Not Recovered/Not Resolved]
  - Myasthenia gravis [Unknown]

NARRATIVE: CASE EVENT DATE: 20140623
